FAERS Safety Report 6270767-9 (Version None)
Quarter: 2009Q3

REPORT INFORMATION
  Report Type: 
  Country: None (occurrence: None)
  Receive Date: 20090716
  Receipt Date: 20090612
  Transmission Date: 20100115
  Serious: Yes (Death)
  Sender: FDA-Public Use
  Company Number: US-ROCHE-638390

PATIENT
  Sex: Male
  Weight: 80.9 kg

DRUGS (21)
  1. ENFUVIRTIDE [Suspect]
     Indication: HIV INFECTION
     Dosage: LAST DOSE PRIOR TO SAE: 24 MAY 2009, FREQUENCY: SQ BID,PERMANENTLY DISCONTINUED.
     Route: 058
     Dates: start: 20080507, end: 20090605
  2. RALTEGRAVIR [Suspect]
     Indication: HIV INFECTION
     Dosage: LAST DOSE PRIOR TO SAE: 24 MAY 2008, FREQUENCY: BID,PERMANENTLY DISCONTINUED.
     Route: 048
     Dates: start: 20080507, end: 20090605
  3. DARUNAVIR [Suspect]
     Indication: HIV INFECTION
     Dosage: LAST DOSE PRIOR TO SAE: 24 MAY 2008, FREQUENCY: BID,PERMANENTLY DISCONTINUED.
     Route: 048
     Dates: start: 20080507, end: 20090605
  4. ETRAVIRINE [Suspect]
     Indication: HIV INFECTION
     Dosage: LAST DOSE PRIOR TO SAE: 24 MAY 2009, FREQUENCY: BID,PERMANENTLY DISCONTINUED.
     Route: 048
     Dates: start: 20080507, end: 20090605
  5. RITONAVIR [Suspect]
     Indication: HIV INFECTION
     Dosage: LAST DOSE PRIOR TO SAE: 24 MAY 2009, FREQUENCY: BID,PERMANENTLY DISCONTINUED.
     Route: 048
     Dates: start: 20080507, end: 20090605
  6. EMTRICITABINE [Suspect]
     Indication: HIV INFECTION
     Dosage: DOSE: 500 MG QD.
     Route: 048
     Dates: start: 20080507, end: 20080604
  7. EMTRICITABINE [Suspect]
     Dosage: LAST DOSE PRIOR TO SAE: 24 MAY 2008, FREQUENCY: EVERY DAY,PERMANENTLY DISCONTINUED.
     Route: 048
     Dates: start: 20081126, end: 20090605
  8. TENOFOVIR [Suspect]
     Indication: HIV INFECTION
     Dosage: FREQUENCY: QD
     Route: 065
     Dates: start: 20080605, end: 20081125
  9. ACV [Concomitant]
     Dates: start: 19950115
  10. LAMICTAL [Concomitant]
     Dates: start: 20040826
  11. MOTRIN [Concomitant]
     Dates: start: 20040615
  12. NORTRIPTYLINE HCL [Concomitant]
     Dosage: DOSE REPORTED: 100 MG QHS
     Dates: start: 20040715
  13. LIPITOR [Concomitant]
     Dosage: FREQUENCY: QD
     Dates: start: 20040831
  14. MEXILETINE HYDROCHLORIDE [Concomitant]
     Dates: start: 20080627
  15. GEMFIBROZIL [Concomitant]
     Dates: start: 20050715
  16. LEVALBUTEROL HYDROCHLORIDE [Concomitant]
     Dosage: DOSE: 1-2 PUFFS TID/PRN
     Dates: start: 20060824
  17. ANDROGEL [Concomitant]
     Dosage: DRUG: ANDROGEL PUMP, DOSE:5 MG LIQUID QD
     Dates: start: 20061027
  18. OXYCONTIN [Concomitant]
     Dates: start: 20080824
  19. CREAM NOS [Concomitant]
     Dosage: DOSE: 1 APP BID,DRUG NAME: ALDERA CREAM
     Dates: start: 20080515
  20. SEPTRA DS [Concomitant]
     Dates: start: 20080719
  21. EFUDEX [Concomitant]
     Dosage: DRUG NAME: EFUDEX CREAM, DOSE: 5% BID X 5 DAYS- OFF X 9 DAYS, 16 WEEK CYCLE.
     Dates: start: 20081010

REACTIONS (5)
  - DEATH [None]
  - FALL [None]
  - INJECTION SITE REACTION [None]
  - NASOPHARYNGITIS [None]
  - PAIN IN EXTREMITY [None]
